FAERS Safety Report 21678494 (Version 2)
Quarter: 2022Q4

REPORT INFORMATION
  Report Type: Report from Study
  Country: US (occurrence: US)
  Receive Date: 20221203
  Receipt Date: 20221219
  Transmission Date: 20230112
  Serious: Yes (Death, Hospitalization, Other)
  Sender: FDA-Public Use
  Company Number: US-AMGEN-USACT2021068984

PATIENT
  Age: 42 Year
  Sex: Male
  Weight: 40 kg

DRUGS (2)
  1. TALIMOGENE LAHERPAREPVEC [Suspect]
     Active Substance: TALIMOGENE LAHERPAREPVEC
     Indication: Metastatic malignant melanoma
     Dosage: 4 MILLILITER, Q3WK (UP TO 4ML OF 1 MILLION (10^6) PFU/ML INTRALESIONAL ON DAY 1)
     Route: 026
     Dates: start: 20200429
  2. PEMBROLIZUMAB [Suspect]
     Active Substance: PEMBROLIZUMAB
     Indication: Metastatic malignant melanoma
     Dosage: 200 MILLIGRAM, CYCLICAL (OVER 30 MINUTES ON DAY 1)
     Route: 042
     Dates: start: 20200429

REACTIONS (4)
  - Death [Fatal]
  - Hypoxia [Recovered/Resolved]
  - Lymphocyte count decreased [Recovered/Resolved]
  - Failure to thrive [Recovered/Resolved]

NARRATIVE: CASE EVENT DATE: 20200430
